FAERS Safety Report 15077217 (Version 9)
Quarter: 2019Q2

REPORT INFORMATION
  Report Type: Report from Study
  Country: US (occurrence: US)
  Receive Date: 20180627
  Receipt Date: 20190626
  Transmission Date: 20190711
  Serious: Yes (Hospitalization, Other)
  Sender: FDA-Public Use
  Company Number: US-ACTELION-A-US2018-173933

PATIENT
  Age: 34 Year
  Sex: Female

DRUGS (27)
  1. DIAZEPAM. [Concomitant]
     Active Substance: DIAZEPAM
  2. PANTOPRAZOLE [Concomitant]
     Active Substance: PANTOPRAZOLE
  3. LEVOTHYROXINE. [Concomitant]
     Active Substance: LEVOTHYROXINE
  4. BUMETANIDE. [Concomitant]
     Active Substance: BUMETANIDE
  5. CLIMARA [Concomitant]
     Active Substance: ESTRADIOL
  6. OLANZAPINE. [Concomitant]
     Active Substance: OLANZAPINE
  7. MONTELUKAST [Concomitant]
     Active Substance: MONTELUKAST SODIUM
  8. OXYCODONE [Concomitant]
     Active Substance: OXYCODONE
  9. DULOXETINE. [Concomitant]
     Active Substance: DULOXETINE
  10. NARCAN [Concomitant]
     Active Substance: NALOXONE HYDROCHLORIDE
  11. SILDENAFIL. [Concomitant]
     Active Substance: SILDENAFIL
  12. MIDODRINE [Concomitant]
     Active Substance: MIDODRINE
  13. CALCIUM CARBONATE. [Concomitant]
     Active Substance: CALCIUM CARBONATE
  14. OXYGEN. [Concomitant]
     Active Substance: OXYGEN
     Dosage: (BASELINE) NOCTURNAL
  15. MEDROXYPROGESTERONE [Concomitant]
     Active Substance: MEDROXYPROGESTERONE
  16. VITAMIN D3 [Concomitant]
     Active Substance: CHOLECALCIFEROL
  17. OMEGA 3 FISH OIL [Concomitant]
     Active Substance: FISH OIL\OMEGA-3 FATTY ACIDS
  18. MAGNESIUM OXIDE. [Concomitant]
     Active Substance: MAGNESIUM OXIDE
  19. OPSUMIT [Suspect]
     Active Substance: MACITENTAN
     Indication: PULMONARY ARTERIAL HYPERTENSION
     Dosage: 10 MG, QD
     Route: 048
     Dates: start: 20180505
  20. SPIRONOLACTONE. [Concomitant]
     Active Substance: SPIRONOLACTONE
  21. GABAPENTIN. [Concomitant]
     Active Substance: GABAPENTIN
  22. ESGIC [Concomitant]
     Active Substance: ACETAMINOPHEN\BUTALBITAL\CAFFEINE
  23. PREDNISONE. [Concomitant]
     Active Substance: PREDNISONE
  24. MVI [Concomitant]
     Active Substance: VITAMINS
  25. OXYGEN. [Concomitant]
     Active Substance: OXYGEN
     Dosage: 3 L, AT HOME
  26. ATENOLOL. [Concomitant]
     Active Substance: ATENOLOL
  27. CETIRIZINE [Concomitant]
     Active Substance: CETIRIZINE HYDROCHLORIDE

REACTIONS (28)
  - Blood creatinine increased [Unknown]
  - Vomiting [Unknown]
  - Pyrexia [Recovered/Resolved]
  - Muscle spasms [Unknown]
  - Blood potassium decreased [Unknown]
  - Acute kidney injury [Unknown]
  - Blood sodium decreased [Unknown]
  - Hypokalaemia [Unknown]
  - Migraine [Recovering/Resolving]
  - Oxygen saturation decreased [Recovering/Resolving]
  - Diarrhoea [Unknown]
  - Hospitalisation [Unknown]
  - Blood pressure decreased [Unknown]
  - Chest discomfort [Unknown]
  - Fluid overload [Recovering/Resolving]
  - Syncope [Unknown]
  - Cerebrospinal fluid leakage [Recovered/Resolved]
  - Fatigue [Unknown]
  - Dyspnoea [Recovering/Resolving]
  - Dizziness [Unknown]
  - Nausea [Unknown]
  - Pulmonary hypertension [Unknown]
  - Condition aggravated [Unknown]
  - Oropharyngeal pain [Recovered/Resolved]
  - Palpitations [Unknown]
  - Hypovolaemia [Unknown]
  - Dehydration [Unknown]
  - Chest pain [Unknown]

NARRATIVE: CASE EVENT DATE: 2018
